FAERS Safety Report 8449123-0 (Version None)
Quarter: 2012Q2

REPORT INFORMATION
  Report Type: 
  Country: None (occurrence: None)
  Receive Date: 20120619
  Receipt Date: 20120611
  Transmission Date: 20120825
  Serious: Yes (Hospitalization)
  Sender: FDA-Public Use
  Company Number: US-JNJFOC-20120605658

PATIENT
  Age: 68 Year
  Sex: Male
  Weight: 121 kg

DRUGS (1)
  1. XARELTO [Suspect]
     Indication: THROMBOSIS PROPHYLAXIS
     Route: 048
     Dates: start: 20111216, end: 20120105

REACTIONS (4)
  - PROCEDURAL HAEMORRHAGE [None]
  - EXTRADURAL HAEMATOMA [None]
  - ANAL SPHINCTER ATONY [None]
  - MUSCULAR WEAKNESS [None]
